FAERS Safety Report 13255918 (Version 1)
Quarter: 2017Q1

REPORT INFORMATION
  Report Type: Report from Study
  Country: US (occurrence: US)
  Receive Date: 20170221
  Receipt Date: 20170221
  Transmission Date: 20170428
  Serious: Yes (Other)
  Sender: FDA-Public Use
  Company Number: US-JNJFOC-20161206882

PATIENT
  Age: 65 Year
  Sex: Male

DRUGS (12)
  1. IMBRUVICA [Suspect]
     Active Substance: IBRUTINIB
     Indication: CHRONIC LYMPHOCYTIC LEUKAEMIA
     Route: 048
  2. IMBRUVICA [Suspect]
     Active Substance: IBRUTINIB
     Indication: PHLEBITIS
     Route: 048
  3. IMBRUVICA [Suspect]
     Active Substance: IBRUTINIB
     Indication: THROMBOPHLEBITIS
     Route: 048
     Dates: start: 20161109
  4. IMBRUVICA [Suspect]
     Active Substance: IBRUTINIB
     Indication: THROMBOPHLEBITIS
     Route: 048
  5. IMBRUVICA [Suspect]
     Active Substance: IBRUTINIB
     Indication: CHRONIC LYMPHOCYTIC LEUKAEMIA
     Route: 048
     Dates: start: 20161109
  6. IMBRUVICA [Suspect]
     Active Substance: IBRUTINIB
     Indication: CHRONIC LYMPHOCYTIC LEUKAEMIA
     Route: 048
     Dates: start: 20161109, end: 201701
  7. IMBRUVICA [Suspect]
     Active Substance: IBRUTINIB
     Indication: THROMBOPHLEBITIS
     Route: 048
     Dates: start: 201702
  8. IMBRUVICA [Suspect]
     Active Substance: IBRUTINIB
     Indication: THROMBOPHLEBITIS
     Route: 048
     Dates: start: 20161109, end: 201701
  9. IMBRUVICA [Suspect]
     Active Substance: IBRUTINIB
     Indication: PHLEBITIS
     Route: 048
     Dates: start: 201702
  10. IMBRUVICA [Suspect]
     Active Substance: IBRUTINIB
     Indication: CHRONIC LYMPHOCYTIC LEUKAEMIA
     Route: 048
     Dates: start: 201702
  11. IMBRUVICA [Suspect]
     Active Substance: IBRUTINIB
     Indication: PHLEBITIS
     Route: 048
     Dates: start: 20161109, end: 201701
  12. IMBRUVICA [Suspect]
     Active Substance: IBRUTINIB
     Indication: PHLEBITIS
     Route: 048
     Dates: start: 20161109

REACTIONS (6)
  - Off label use [Unknown]
  - Product use issue [Unknown]
  - Nausea [Recovered/Resolved]
  - Subdural haemorrhage [Recovered/Resolved]
  - Increased tendency to bruise [Not Recovered/Not Resolved]
  - Ear discomfort [Unknown]

NARRATIVE: CASE EVENT DATE: 20161109
